FAERS Safety Report 8976182 (Version 1)
Quarter: 2012Q4

REPORT INFORMATION
  Report Type: 
  Country: US (occurrence: US)
  Receive Date: 20121219
  Receipt Date: 20121219
  Transmission Date: 20130627
  Serious: No
  Sender: FDA-Public Use
  Company Number: US-AMGEN-USASP2012064827

PATIENT
  Age: 56 Year
  Sex: Female
  Weight: 60.32 kg

DRUGS (2)
  1. XGEVA [Suspect]
     Indication: METASTASES TO BONE
     Dosage: 120 mg, UNK
     Route: 030
     Dates: start: 20121009
  2. FASLODEX                           /01285001/ [Concomitant]
     Indication: BREAST CANCER
     Dosage: 500 mg, qmo
     Route: 030
     Dates: start: 201201

REACTIONS (1)
  - Incorrect route of drug administration [Unknown]
